FAERS Safety Report 21188014 (Version 1)
Quarter: 2022Q3

REPORT INFORMATION
  Report Type: Spontaneous
  Country: CN (occurrence: CN)
  Receive Date: 20220809
  Receipt Date: 20220809
  Transmission Date: 20221027
  Serious: Yes (Other)
  Sender: FDA-Public Use
  Company Number: CN-SUN PHARMACEUTICAL INDUSTRIES LTD-2022R1-347098

PATIENT
  Sex: Female
  Weight: 1.26 kg

DRUGS (13)
  1. EPINEPHRINE [Suspect]
     Active Substance: EPINEPHRINE
     Indication: Prophylaxis
     Dosage: UNK (0.01-0.02 UG/KG/MIN)
     Route: 064
  2. CEFACLOR [Suspect]
     Active Substance: CEFACLOR
     Indication: Influenza
     Dosage: UNK
     Route: 064
  3. FUROSEMIDE [Suspect]
     Active Substance: FUROSEMIDE
     Indication: Product used for unknown indication
     Dosage: 20 MILLIGRAM, DAILY
     Route: 064
  4. NOREPINEPHRINE [Suspect]
     Active Substance: NOREPINEPHRINE
     Indication: Prophylaxis
     Dosage: UNK (0.01-0.05 UG/KG/MIN)
     Route: 064
  5. SILDENAFIL [Suspect]
     Active Substance: SILDENAFIL
     Indication: Systemic lupus erythematosus
     Dosage: 50 MILLIGRAM, DAILY
     Route: 064
  6. SILDENAFIL [Suspect]
     Active Substance: SILDENAFIL
     Indication: Pulmonary arterial hypertension
     Dosage: 75 MILLIGRAM, DAILY
     Route: 064
  7. HEPARIN [Suspect]
     Active Substance: HEPARIN SODIUM
     Indication: Anticoagulant therapy
     Dosage: UNK (5,000 U PER 12 HOURS)
     Route: 064
  8. LIDOCAINE [Suspect]
     Active Substance: LIDOCAINE
     Indication: Epidural anaesthesia
     Dosage: UNK (3 ML OF 2%)
     Route: 064
  9. LIDOCAINE [Suspect]
     Active Substance: LIDOCAINE
     Dosage: UNK (1% OF 10 ML)
     Route: 064
  10. POTASSIUM CHLORIDE [Suspect]
     Active Substance: POTASSIUM CHLORIDE
     Indication: Product used for unknown indication
     Dosage: 0.5 GRAM, BID
     Route: 064
  11. EPOPROSTENOL [Suspect]
     Active Substance: EPOPROSTENOL
     Indication: Pulmonary arterial hypertension
     Route: 064
  12. TAMIFLU [Suspect]
     Active Substance: OSELTAMIVIR PHOSPHATE
     Indication: Influenza
     Dosage: UNK
     Route: 064
  13. ROPIVACAINE [Suspect]
     Active Substance: ROPIVACAINE
     Indication: Epidural anaesthesia
     Dosage: UNK
     Route: 064

REACTIONS (2)
  - Premature baby [Unknown]
  - Foetal exposure during pregnancy [Unknown]
